FAERS Safety Report 6990578-6 (Version None)
Quarter: 2010Q3

REPORT INFORMATION
  Report Type: 
  Country: None (occurrence: None)
  Receive Date: 20100916
  Receipt Date: 20100712
  Transmission Date: 20110219
  Serious: Yes (Other)
  Sender: FDA-Public Use
  Company Number: US-PFIZER INC-2010087443

PATIENT
  Sex: Female
  Weight: 64.39 kg

DRUGS (3)
  1. LYRICA [Suspect]
     Indication: FIBROMYALGIA
     Dosage: 150 MG, 2X/DAY
     Route: 048
     Dates: start: 20090101
  2. LYRICA [Suspect]
     Dosage: 200 MG, 2X/DAY
     Route: 048
  3. ZANTAC [Concomitant]
     Indication: DYSPEPSIA
     Dosage: 300 MG, UNK
     Route: 048

REACTIONS (2)
  - CONVULSION [None]
  - WEIGHT INCREASED [None]
